FAERS Safety Report 5513340-X (Version None)
Quarter: 2007Q4

REPORT INFORMATION
  Report Type: 
  Country: None (occurrence: None)
  Receive Date: 20071108
  Receipt Date: 20071023
  Transmission Date: 20080405
  Serious: Yes (Hospitalization)
  Sender: FDA-Public Use
  Company Number: CTI_00926_2007

PATIENT
  Sex: Male
  Weight: 92.0802 kg

DRUGS (6)
  1. ZYFLO [Suspect]
     Indication: MASTOCYTOSIS
     Dosage: 600 MG QID ORAL
     Route: 048
     Dates: start: 20070403
  2. PAROXETINE [Concomitant]
  3. GASTROCROM [Concomitant]
  4. HYDROXYZINE [Concomitant]
  5. FOSAMAX [Concomitant]
  6. VITAMIN D [Concomitant]

REACTIONS (3)
  - CONDITION AGGRAVATED [None]
  - MASTOCYTOSIS [None]
  - PALPITATIONS [None]
